FAERS Safety Report 5927875-9 (Version None)
Quarter: 2008Q4

REPORT INFORMATION
  Report Type: 
  Country: None (occurrence: None)
  Receive Date: 20081023
  Receipt Date: 20081014
  Transmission Date: 20090506
  Serious: Yes (Other)
  Sender: FDA-Public Use
  Company Number: GB-AMGEN-US314414

PATIENT
  Sex: Female

DRUGS (15)
  1. ENBREL [Suspect]
     Indication: DRUG USE FOR UNKNOWN INDICATION
     Route: 058
  2. PREDNISOLONE [Concomitant]
     Dosage: 7.5 MG UPWARDS (FREQUENCY UNKNOWN)
     Route: 065
  3. METHYLDOPA [Concomitant]
     Dosage: UNKNOWN
     Route: 065
  4. LOSARTAN [Concomitant]
     Dosage: UNKNOWN
     Route: 065
  5. FUROSEMIDE [Concomitant]
     Dosage: UNKNOWN
     Route: 065
  6. TRAMADOL HCL [Concomitant]
     Dosage: UNKNOWN
     Route: 065
  7. SERTRALINE [Concomitant]
     Dosage: UNKNOWN
     Route: 065
  8. ADCAL [Concomitant]
     Dosage: UNKNOWN
     Route: 065
  9. RISEDRONATE SODIUM [Concomitant]
     Dosage: UNKNOWN
     Route: 065
  10. MORPHINE [Concomitant]
     Dosage: UNKNOWN
     Route: 065
  11. OXAZEPAM [Concomitant]
     Dosage: UNKNOWN
     Route: 065
  12. CORTICOSTEROID NOS [Concomitant]
     Dosage: UNKNOWN
     Route: 065
  13. ESOMEPRAZOLE MAGNESIUM [Concomitant]
     Dosage: UNKNOWN
     Route: 065
  14. UNSPECIFIED HORMONE REPLACEMENT THERAPY AGENT [Concomitant]
     Route: 061
  15. UNSPECIFIED INHALER [Concomitant]
     Route: 055

REACTIONS (2)
  - INCREASED TENDENCY TO BRUISE [None]
  - RECTAL HAEMORRHAGE [None]
